FAERS Safety Report 25863350 (Version 2)
Quarter: 2025Q4

REPORT INFORMATION
  Report Type: Report from Study
  Country: EU (occurrence: EU)
  Receive Date: 20250930
  Receipt Date: 20251119
  Transmission Date: 20260117
  Serious: Yes (Other)
  Sender: RANBAXY
  Company Number: EU-ALMIRALL-IT-2025-3370

PATIENT
  Age: 52 Year
  Sex: Female
  Weight: 48 kg

DRUGS (1)
  1. TILDRAKIZUMAB [Suspect]
     Active Substance: TILDRAKIZUMAB
     Indication: Psoriasis
     Dosage: 200 MILLIGRAM, UNK
     Route: 058
     Dates: start: 20240628, end: 20250507

REACTIONS (1)
  - Malignant melanoma stage 0 [Not Recovered/Not Resolved]

NARRATIVE: CASE EVENT DATE: 20250507
